FAERS Safety Report 17376792 (Version 1)
Quarter: 2020Q1

REPORT INFORMATION
  Report Type: Spontaneous
  Country: US (occurrence: US)
  Receive Date: 20191017
  Receipt Date: 20191017
  Transmission Date: 20200409
  Serious: Yes (Life-Threatening)
  Sender: FDA-Public Use
  Company Number: None

PATIENT
  Age: 19 Year
  Sex: Male

DRUGS (3)
  1. HQD CUVIE BLUEBERRY FLAVOR [Suspect]
     Active Substance: DEVICE\NICOTINE
  2. SEROQUEL [Suspect]
     Active Substance: QUETIAPINE FUMARATE
  3. VYVANSE [Suspect]
     Active Substance: LISDEXAMFETAMINE DIMESYLATE
     Route: 055

REACTIONS (1)
  - Seizure [None]
